FAERS Safety Report 7898936 (Version 7)
Quarter: 2012Q4

REPORT INFORMATION
  Report Type: Report from Study
  Country: US (occurrence: US)
  Receive Date: 20110414
  Receipt Date: 20121119
  Transmission Date: 20130627
  Serious: Yes (Hospitalization)
  Sender: FDA-Public Use
  Company Number: US-JNJFOC-20110401056

PATIENT
  Age: 15 Year
  Sex: Female
  Weight: 79.9 kg

DRUGS (4)
  1. REMICADE [Suspect]
     Indication: INFLAMMATORY BOWEL DISEASE
     Route: 042
     Dates: start: 20090914
  2. BACTRIM [Concomitant]
  3. CLINDAMYCIN [Concomitant]
  4. IRON [Concomitant]

REACTIONS (1)
  - Hidradenitis [Recovered/Resolved]
